FAERS Safety Report 13118893 (Version 7)
Quarter: 2020Q2

REPORT INFORMATION
  Report Type: Report from Study
  Country: US (occurrence: US)
  Receive Date: 20170116
  Receipt Date: 20200616
  Transmission Date: 20200713
  Serious: No
  Sender: FDA-Public Use
  Company Number: PHEH2017US001647

PATIENT
  Age: 19 Year
  Sex: Male

DRUGS (3)
  1. AFINITOR [Suspect]
     Active Substance: EVEROLIMUS
     Indication: ASTROCYTOMA, LOW GRADE
     Dosage: 7.5 MG, QD
     Route: 048
     Dates: start: 20080102
  2. EVEROLIMUS. [Concomitant]
     Active Substance: EVEROLIMUS
     Indication: TUBEROUS SCLEROSIS COMPLEX
     Dosage: 7.5 MG, QD
     Route: 048
     Dates: start: 20200109, end: 20200320
  3. EVEROLIMUS. [Concomitant]
     Active Substance: EVEROLIMUS
     Indication: ANGIOMYOLIPOMA

REACTIONS (3)
  - Stomatitis [Unknown]
  - Cough [Not Recovered/Not Resolved]
  - Nasopharyngitis [Recovered/Resolved]

NARRATIVE: CASE EVENT DATE: 20170104
